FAERS Safety Report 6073179-6 (Version None)
Quarter: 2009Q1

REPORT INFORMATION
  Report Type: 
  Country: None (occurrence: None)
  Receive Date: 20090206
  Receipt Date: 20090122
  Transmission Date: 20090719
  Serious: Yes (Other)
  Sender: FDA-Public Use
  Company Number: THYM-1000887

PATIENT
  Sex: Female

DRUGS (2)
  1. THYMOGLOBULINE           (ANTI-THYMOCYTE GLOBULIN (RABBIT) FOR INFUSIO [Suspect]
     Indication: APLASTIC ANAEMIA
     Dosage: 150 MG, QD, INTRAVENOUS
     Route: 042
     Dates: start: 20090119, end: 20090121
  2. CYCLOSPORINE [Concomitant]

REACTIONS (4)
  - ALANINE AMINOTRANSFERASE INCREASED [None]
  - ASPARTATE AMINOTRANSFERASE INCREASED [None]
  - BLOOD BILIRUBIN INCREASED [None]
  - HEPATIC ENZYME INCREASED [None]
